FAERS Safety Report 6220091-5 (Version None)
Quarter: 2009Q2

REPORT INFORMATION
  Report Type: 
  Country: None (occurrence: None)
  Receive Date: 20090609
  Receipt Date: 20090527
  Transmission Date: 20091009
  Serious: Yes (Hospitalization, Other)
  Sender: FDA-Public Use
  Company Number: US-ELI_LILLY_AND_COMPANY-US200905005384

PATIENT
  Sex: Male
  Weight: 98.866 kg

DRUGS (5)
  1. BYETTA [Suspect]
     Indication: TYPE 2 DIABETES MELLITUS
     Dosage: 5 UG, 2/D
     Route: 058
     Dates: start: 20060101
  2. BYETTA [Suspect]
     Dosage: 10 UG, 2/D
     Route: 058
     Dates: start: 20060101
  3. OTHER CARDIAC PREPARATIONS [Concomitant]
     Indication: CARDIAC DISORDER
     Dosage: UNK, UNKNOWN
     Dates: start: 20060101
  4. DIURETICS [Concomitant]
     Indication: POLYURIA
     Dosage: UNK, UNKNOWN
  5. OTHER LIPID MODIFYING AGENTS [Concomitant]
     Dosage: UNK, UNKNOWN

REACTIONS (22)
  - ABNORMAL DREAMS [None]
  - ARTHROPATHY [None]
  - BLOOD GLUCOSE DECREASED [None]
  - CARDIOVERSION [None]
  - CYSTITIS [None]
  - DRUG INEFFECTIVE [None]
  - FEELING ABNORMAL [None]
  - FLUID RETENTION [None]
  - GENERALISED OEDEMA [None]
  - HALLUCINATION [None]
  - HIP ARTHROPLASTY [None]
  - INCISION SITE HAEMORRHAGE [None]
  - INCISION SITE INFECTION [None]
  - MYOCARDIAL INFARCTION [None]
  - PAIN [None]
  - PRESYNCOPE [None]
  - TOBACCO USER [None]
  - TOTAL LUNG CAPACITY DECREASED [None]
  - VISUAL BRIGHTNESS [None]
  - VOLUME BLOOD DECREASED [None]
  - WEIGHT FLUCTUATION [None]
  - WOUND DEHISCENCE [None]
